FAERS Safety Report 4335089-1 (Version None)
Quarter: 2004Q1

REPORT INFORMATION
  Report Type: 
  Country: None (occurrence: None)
  Receive Date: 20040329
  Receipt Date: 20040128
  Transmission Date: 20041129
  Serious: No
  Sender: FDA-Public Use
  Company Number: 04P-163-0248744-00

PATIENT
  Sex: Female

DRUGS (3)
  1. HUMIRA [Suspect]
     Indication: RHEUMATOID ARTHRITIS
     Dosage: 40 MG, 2 IN 1 D, SUBCUTANEOUS
     Route: 058
     Dates: start: 20031101
  2. MELOXICAM [Concomitant]
  3. NAPROXEN SODIUM [Concomitant]

REACTIONS (2)
  - OEDEMA PERIPHERAL [None]
  - PYREXIA [None]
